FAERS Safety Report 4695616-1 (Version None)
Quarter: 2005Q2

REPORT INFORMATION
  Report Type: 
  Country: None (occurrence: None)
  Receive Date: 20050524
  Receipt Date: 20050503
  Transmission Date: 20051028
  Serious: Yes (Death)
  Sender: FDA-Public Use
  Company Number: GB-BOEHRINGER INGELHEIM PHARMACEUTICALS, INC.-2005-UK-00746UK

PATIENT
  Sex: Male

DRUGS (11)
  1. TIOTROPIUM (00015/0190/A) [Suspect]
     Route: 055
  2. ALLOPURINOL [Suspect]
  3. DIGOXIN [Suspect]
  4. FUROSEMIDE [Suspect]
  5. PANTOPRAZOLE [Suspect]
  6. PARACETAMOL [Suspect]
  7. PERINDOPRIL [Suspect]
  8. SIMVASTATIN [Suspect]
  9. WARFARIN SODIUM [Suspect]
  10. BECLOMETHASONE DIPROPIONATE [Suspect]
     Route: 055
  11. VENTOLIN [Suspect]
     Route: 055

REACTIONS (1)
  - AORTIC DISSECTION [None]
